FAERS Safety Report 14976677 (Version 3)
Quarter: 2018Q3

REPORT INFORMATION
  Report Type: Spontaneous
  Country: US (occurrence: US)
  Receive Date: 20180605
  Receipt Date: 20180712
  Transmission Date: 20181010
  Serious: No
  Sender: FDA-Public Use
  Company Number: US-ACTELION-A-NJ2018-173093

PATIENT
  Age: 72 Year
  Sex: Female

DRUGS (2)
  1. OPSUMIT [Suspect]
     Active Substance: MACITENTAN
     Indication: PULMONARY ARTERIAL HYPERTENSION
     Dosage: 10 MG, QD
     Route: 048
     Dates: start: 20180508
  2. ADEMPAS [Suspect]
     Active Substance: RIOCIGUAT
     Indication: PRODUCT USED FOR UNKNOWN INDICATION
     Dosage: UNK
     Route: 065
     Dates: end: 20180521

REACTIONS (7)
  - Peripheral swelling [Recovering/Resolving]
  - Visual impairment [Recovering/Resolving]
  - Nasal congestion [Unknown]
  - Fatigue [Unknown]
  - Swelling face [Recovering/Resolving]
  - Oedema [Unknown]
  - Headache [Unknown]

NARRATIVE: CASE EVENT DATE: 20180517
